FAERS Safety Report 8505643-1 (Version None)
Quarter: 2012Q3

REPORT INFORMATION
  Report Type: 
  Country: None (occurrence: None)
  Receive Date: 20120712
  Receipt Date: 20120706
  Transmission Date: 20120928
  Serious: Yes (Hospitalization)
  Sender: FDA-Public Use
  Company Number: US-ELI_LILLY_AND_COMPANY-US201202007455

PATIENT
  Sex: Female
  Weight: 92.971 kg

DRUGS (3)
  1. FORTEO [Suspect]
     Dosage: UNK, UNKNOWN
     Route: 065
  2. FORTEO [Suspect]
     Dosage: UNK
     Dates: end: 20120415
  3. FORTEO [Suspect]
     Indication: SENILE OSTEOPOROSIS
     Dosage: UNK, UNKNOWN
     Route: 065
     Dates: start: 20111201

REACTIONS (6)
  - PAIN [None]
  - DYSSTASIA [None]
  - CONTUSION [None]
  - PNEUMONIA [None]
  - FALL [None]
  - BONE PAIN [None]
